FAERS Safety Report 7518019-0 (Version None)
Quarter: 2011Q2

REPORT INFORMATION
  Report Type: 
  Country: None (occurrence: None)
  Receive Date: 20110602
  Receipt Date: 20110523
  Transmission Date: 20111010
  Serious: Yes (Other)
  Sender: FDA-Public Use
  Company Number: JP-JNJFOC-20110512528

PATIENT
  Age: 8 Decade
  Sex: Female

DRUGS (3)
  1. GALANTAMINE HYDROBROMIDE [Suspect]
     Route: 048
     Dates: start: 20110408, end: 20110513
  2. GALANTAMINE HYDROBROMIDE [Suspect]
     Dosage: FIRST WEEK
     Route: 048
  3. GALANTAMINE HYDROBROMIDE [Suspect]
     Indication: DEMENTIA ALZHEIMER'S TYPE
     Route: 048
     Dates: start: 20110513

REACTIONS (2)
  - VOMITING [None]
  - INCORRECT DOSE ADMINISTERED [None]
